FAERS Safety Report 8992206 (Version 1)
Quarter: 2012Q4

REPORT INFORMATION
  Report Type: 
  Country: US (occurrence: US)
  Receive Date: 20121231
  Receipt Date: 20121231
  Transmission Date: 20130627
  Serious: No
  Sender: FDA-Public Use
  Company Number: US-009507513-1212USA008225

PATIENT

DRUGS (1)
  1. PROVENTIL [Suspect]
     Dosage: 1 - 2 puffs every 4 hours, prn
     Route: 055
     Dates: start: 201207

REACTIONS (4)
  - Product quality issue [Unknown]
  - Drug dose omission [Unknown]
  - Drug ineffective [Unknown]
  - Overdose [Unknown]
